FAERS Safety Report 23713250 (Version 1)
Quarter: 2024Q2

REPORT INFORMATION
  Report Type: Spontaneous
  Country: GR (occurrence: None)
  Receive Date: 20240405
  Receipt Date: 20240405
  Transmission Date: 20240716
  Serious: Yes (Other)
  Sender: FDA-Public Use
  Company Number: 2024A081842

PATIENT
  Age: 62 Year
  Sex: Male

DRUGS (6)
  1. CRESTOR [Suspect]
     Active Substance: ROSUVASTATIN CALCIUM
     Indication: Coronary angioplasty
     Dosage: 1 DOSAGE FORM, 1/DAY
     Dates: end: 20180601
  2. CRESTOR [Suspect]
     Active Substance: ROSUVASTATIN CALCIUM
     Indication: Hyperlipidaemia
     Dosage: 1 DOSAGE FORM, 1/DAY
     Dates: end: 20180601
  3. LIPTRUZET [Suspect]
     Active Substance: ATORVASTATIN CALCIUM\EZETIMIBE
     Indication: Coronary angioplasty
     Dosage: 1 DOSAGE FORM, 1/DAY
  4. LIPTRUZET [Suspect]
     Active Substance: ATORVASTATIN CALCIUM\EZETIMIBE
     Indication: Hyperlipidaemia
     Dosage: 1 DOSAGE FORM, 1/DAY
  5. EZETIMIBE\ROSUVASTATIN ZINC [Suspect]
     Active Substance: EZETIMIBE\ROSUVASTATIN ZINC
     Indication: Hyperlipidaemia
     Dosage: UNK UNKNOWN
     Dates: end: 20220101
  6. EZETIMIBE\ROSUVASTATIN ZINC [Suspect]
     Active Substance: EZETIMIBE\ROSUVASTATIN ZINC
     Indication: Coronary angioplasty
     Dosage: UNK UNKNOWN
     Dates: end: 20220101

REACTIONS (2)
  - Tendonitis [Recovered/Resolved]
  - Myopathy [Recovered/Resolved]

NARRATIVE: CASE EVENT DATE: 20170301
